FAERS Safety Report 6793611-X (Version None)
Quarter: 2010Q2

REPORT INFORMATION
  Report Type: 
  Country: None (occurrence: None)
  Receive Date: 20100624
  Receipt Date: 20090203
  Transmission Date: 20101027
  Serious: No
  Sender: FDA-Public Use
  Company Number: US-PFIZER INC-2008156384

PATIENT
  Sex: Female
  Weight: 45.4 kg

DRUGS (5)
  1. DEPO-PROVERA [Suspect]
     Indication: OFF LABEL USE
     Dosage: 150 MG, EVERY 3 MONTHS
     Dates: start: 20080401
  2. DEPO-PROVERA [Suspect]
     Indication: DYSMENORRHOEA
  3. ZYRTEC [Concomitant]
     Dosage: UNK
  4. FOCALIN [Concomitant]
     Dosage: UNK
  5. PONSTEL [Concomitant]
     Dosage: UNK

REACTIONS (1)
  - RASH PRURITIC [None]
